FAERS Safety Report 10475638 (Version 1)
Quarter: 2014Q3

REPORT INFORMATION
  Report Type: Spontaneous
  Country: US (occurrence: US)
  Receive Date: 20140925
  Receipt Date: 20140925
  Transmission Date: 20150326
  Serious: No
  Sender: FDA-Public Use
  Company Number: US-GLAXOSMITHKLINE-A1087504A

PATIENT
  Age: 65 Year
  Sex: Male

DRUGS (5)
  1. VITAMIN D [Concomitant]
     Active Substance: CHOLECALCIFEROL
  2. LAMICTAL [Concomitant]
     Active Substance: LAMOTRIGINE
  3. TERAZOSIN [Concomitant]
     Active Substance: TERAZOSIN\TERAZOSIN HYDROCHLORIDE
  4. KEPPRA [Concomitant]
     Active Substance: LEVETIRACETAM
  5. POTIGA [Suspect]
     Active Substance: EZOGABINE
     Indication: CONVULSION
     Dosage: 200MG TWICE PER DAY
     Route: 048
     Dates: start: 201201

REACTIONS (4)
  - Influenza [Recovering/Resolving]
  - Upper respiratory tract infection [Recovering/Resolving]
  - Speech disorder [Unknown]
  - Drug ineffective [Recovering/Resolving]
